FAERS Safety Report 5619569-4 (Version None)
Quarter: 2008Q1

REPORT INFORMATION
  Report Type: 
  Country: None (occurrence: None)
  Receive Date: 20080205
  Receipt Date: 20080205
  Transmission Date: 20080703
  Serious: Yes (Hospitalization, Other)
  Sender: FDA-Public Use
  Company Number: None

PATIENT
  Sex: Female
  Weight: 59.8748 kg

DRUGS (4)
  1. THERAFLU DAYTIME SEVERE COLD NOVARTIS [Suspect]
     Indication: BRONCHITIS
     Dosage: {30 ML ONCE A DAY PO
     Route: 048
     Dates: start: 20080202, end: 20080202
  2. THERAFLU DAYTIME SEVERE COLD NOVARTIS [Suspect]
     Indication: INFLUENZA
     Dosage: {30 ML ONCE A DAY PO
     Route: 048
     Dates: start: 20080202, end: 20080202
  3. CELEXA [Concomitant]
  4. ADDERALL 10 [Concomitant]

REACTIONS (6)
  - CHILLS [None]
  - DRUG INTERACTION [None]
  - DYSPNOEA [None]
  - HEART RATE INCREASED [None]
  - PALPITATIONS [None]
  - SIMILAR REACTION ON PREVIOUS EXPOSURE TO DRUG [None]
